FAERS Safety Report 10545095 (Version 8)
Quarter: 2016Q1

REPORT INFORMATION
  Report Type: Report from Study
  Country: US (occurrence: US)
  Receive Date: 20141027
  Receipt Date: 20160211
  Transmission Date: 20160525
  Serious: Yes (Disabling, Other)
  Sender: FDA-Public Use
  Company Number: US-SA-2014SA118270

PATIENT
  Age: 41 Year
  Sex: Female

DRUGS (2)
  1. AUBAGIO [Suspect]
     Active Substance: TERIFLUNOMIDE
     Indication: MULTIPLE SCLEROSIS
     Route: 048
     Dates: start: 20140909
  2. AUBAGIO [Suspect]
     Active Substance: TERIFLUNOMIDE
     Indication: MULTIPLE SCLEROSIS
     Route: 048
     Dates: start: 20140822

REACTIONS (28)
  - Gastric disorder [Not Recovered/Not Resolved]
  - Nervous system disorder [Unknown]
  - Vomiting [Unknown]
  - Vocal cord paralysis [Unknown]
  - Myalgia [Not Recovered/Not Resolved]
  - Abdominal pain upper [Not Recovered/Not Resolved]
  - Hypoaesthesia [Unknown]
  - Decreased appetite [Not Recovered/Not Resolved]
  - Diarrhoea [Not Recovered/Not Resolved]
  - Paraesthesia [Unknown]
  - Nasopharyngitis [Not Recovered/Not Resolved]
  - Restless legs syndrome [Not Recovered/Not Resolved]
  - White blood cell count increased [Unknown]
  - Dysgraphia [Unknown]
  - Poor quality sleep [Not Recovered/Not Resolved]
  - Seizure [Not Recovered/Not Resolved]
  - Malaise [Unknown]
  - Dermatitis contact [Unknown]
  - Pneumonia [Not Recovered/Not Resolved]
  - Fatigue [Not Recovered/Not Resolved]
  - Unevaluable event [Unknown]
  - Neoplasm malignant [Unknown]
  - Muscle disorder [Unknown]
  - Nausea [Unknown]
  - Fibromyalgia [Unknown]
  - Upper limb fracture [Unknown]
  - Eye operation [Unknown]
  - Hysterectomy [Unknown]

NARRATIVE: CASE EVENT DATE: 2014
